FAERS Safety Report 23806330 (Version 1)
Quarter: 2024Q2

REPORT INFORMATION
  Report Type: Spontaneous
  Country: SG (occurrence: SG)
  Receive Date: 20240502
  Receipt Date: 20240502
  Transmission Date: 20240716
  Serious: Yes (Other)
  Sender: FDA-Public Use
  Company Number: SG-BAYER-2024A035808

PATIENT
  Sex: Male

DRUGS (10)
  1. EYLEA [Suspect]
     Active Substance: AFLIBERCEPT
     Indication: Polypoidal choroidal vasculopathy
     Dosage: 1 DF, ONCE, LEFT EYE, SOLUTION FOR INJECTION, 40 MG/ML
     Dates: start: 20221115, end: 20221115
  2. EYLEA [Suspect]
     Active Substance: AFLIBERCEPT
     Dosage: 1 DF, ONCE, LEFT EYE, SOLUTION FOR INJECTION, 40 MG/ML
     Dates: start: 20221220, end: 20221220
  3. EYLEA [Suspect]
     Active Substance: AFLIBERCEPT
     Dosage: 1 DF, ONCE, LEFT EYE, SOLUTION FOR INJECTION, 40 MG/ML
     Dates: start: 20230131, end: 20230131
  4. EYLEA [Suspect]
     Active Substance: AFLIBERCEPT
     Dosage: 1 DF, ONCE, LEFT EYE, SOLUTION FOR INJECTION, 40 MG/ML
     Dates: start: 20230328, end: 20230328
  5. EYLEA [Suspect]
     Active Substance: AFLIBERCEPT
     Dosage: 1 DF, ONCE, LEFT EYE, SOLUTION FOR INJECTION, 40 MG/ML
     Dates: start: 20230606, end: 20230606
  6. EYLEA [Suspect]
     Active Substance: AFLIBERCEPT
     Dosage: 1 DF, ONCE, LEFT EYE, SOLUTION FOR INJECTION, 40 MG/ML
     Dates: start: 20230912, end: 20230912
  7. EYLEA [Suspect]
     Active Substance: AFLIBERCEPT
     Dosage: 1 DF, ONCE, LEFT EYE, SOLUTION FOR INJECTION, 40 MG/ML
     Dates: start: 20231010, end: 20231010
  8. EYLEA [Suspect]
     Active Substance: AFLIBERCEPT
     Dosage: 1 DF, ONCE, LEFT EYE, SOLUTION FOR INJECTION, 40 MG/ML
     Dates: start: 20231114, end: 20231114
  9. EYLEA [Suspect]
     Active Substance: AFLIBERCEPT
     Dosage: 1 DF, ONCE, LEFT EYE, SOLUTION FOR INJECTION, 40 MG/ML
     Dates: start: 20240109, end: 20240109
  10. EYLEA [Suspect]
     Active Substance: AFLIBERCEPT
     Dosage: 1 DF, ONCE, LEFT EYE, SOLUTION FOR INJECTION, 40 MG/ML
     Dates: start: 20240222, end: 20240222

REACTIONS (3)
  - Subretinal fluid [Not Recovered/Not Resolved]
  - Inappropriate schedule of product administration [Not Recovered/Not Resolved]
  - Therapeutic product effect incomplete [Not Recovered/Not Resolved]

NARRATIVE: CASE EVENT DATE: 20240416
